FAERS Safety Report 24238047 (Version 2)
Quarter: 2025Q2

REPORT INFORMATION
  Report Type: Spontaneous
  Country: US (occurrence: US)
  Receive Date: 20240822
  Receipt Date: 20250509
  Transmission Date: 20250716
  Serious: Yes (Other)
  Sender: NOVARTIS
  Company Number: US-002147023-NVSC2024US168427

PATIENT

DRUGS (2)
  1. IMATINIB [Suspect]
     Active Substance: IMATINIB
     Indication: C-kit gene mutation
     Route: 065
  2. IMATINIB [Suspect]
     Active Substance: IMATINIB
     Indication: Malignant melanoma

REACTIONS (3)
  - Pneumonitis [Unknown]
  - Neutrophil count decreased [Unknown]
  - Off label use [Unknown]
